FAERS Safety Report 14436652 (Version 1)
Quarter: 2018Q1

REPORT INFORMATION
  Report Type: Spontaneous
  Country: US (occurrence: US)
  Receive Date: 20180124
  Receipt Date: 20180124
  Transmission Date: 20180509
  Serious: No
  Sender: FDA-Public Use
  Company Number: None

PATIENT
  Age: 62 Year
  Sex: Female

DRUGS (1)
  1. LETAIRIS [Suspect]
     Active Substance: AMBRISENTAN
     Indication: PULMONARY ARTERIAL HYPERTENSION
     Route: 048
     Dates: start: 20171014, end: 20171218

REACTIONS (5)
  - Oedema peripheral [None]
  - Condition aggravated [None]
  - Weight increased [None]
  - Therapy cessation [None]
  - Pulmonary arterial hypertension [None]

NARRATIVE: CASE EVENT DATE: 20171218
